FAERS Safety Report 14327149 (Version 4)
Quarter: 2018Q2

REPORT INFORMATION
  Report Type: Spontaneous
  Country: GB (occurrence: GB)
  Receive Date: 20171227
  Receipt Date: 20180528
  Transmission Date: 20180711
  Serious: Yes (Death, Hospitalization, Other)
  Sender: FDA-Public Use
  Company Number: PHHY2017GB194341

PATIENT
  Age: 59 Year
  Sex: Male

DRUGS (4)
  1. METHOTREXATE SODIUM. [Suspect]
     Active Substance: METHOTREXATE SODIUM
     Indication: PSORIASIS
     Dosage: 20 MG, QW
     Route: 048
     Dates: start: 200411, end: 201505
  2. AVANDAMET [Concomitant]
     Active Substance: METFORMIN HYDROCHLORIDE\ROSIGLITAZONE MALEATE
     Indication: DIABETES MELLITUS
     Dosage: 4 MG, QD (2 MG, 2X/DAY)
     Route: 065
     Dates: start: 20060502, end: 201101
  3. METHOTREXATE SODIUM. [Suspect]
     Active Substance: METHOTREXATE SODIUM
     Indication: PSORIATIC ARTHROPATHY
  4. COMPETACT [Concomitant]
     Active Substance: METFORMIN HYDROCHLORIDE\PIOGLITAZONE HYDROCHLORIDE
     Indication: DIABETES MELLITUS
     Route: 065

REACTIONS (44)
  - Death [Fatal]
  - Influenza [Fatal]
  - Hypersensitivity [Fatal]
  - Oesophageal varices haemorrhage [Fatal]
  - Pneumonia [Fatal]
  - Dyspnoea [Fatal]
  - Decubitus ulcer [Fatal]
  - Mouth ulceration [Fatal]
  - Hepatic failure [Fatal]
  - Platelet count decreased [Fatal]
  - Abscess [Fatal]
  - Nasopharyngitis [Fatal]
  - Haemorrhage [Fatal]
  - Pulmonary fibrosis [Fatal]
  - Anaemia [Fatal]
  - Fluid retention [Fatal]
  - Mobility decreased [Fatal]
  - Groin pain [Fatal]
  - Bone marrow failure [Fatal]
  - Infection [Fatal]
  - Cough [Fatal]
  - Gastrointestinal haemorrhage [Fatal]
  - Intertrigo [Fatal]
  - Skin infection [Fatal]
  - Fatigue [Fatal]
  - Cognitive disorder [Fatal]
  - Body temperature increased [Fatal]
  - Portal hypertension [Fatal]
  - General physical health deterioration [Fatal]
  - Unresponsive to stimuli [Fatal]
  - Wheezing [Fatal]
  - Swelling [Fatal]
  - Bedridden [Fatal]
  - Kidney infection [Fatal]
  - Erythema [Fatal]
  - Hepatic fibrosis [Fatal]
  - Nodular regenerative hyperplasia [Fatal]
  - Hepatic encephalopathy [Fatal]
  - Weight increased [Fatal]
  - Osteomyelitis [Fatal]
  - Urinary tract infection [Fatal]
  - Photosensitivity reaction [Fatal]
  - Sepsis [Fatal]
  - Infection [Fatal]

NARRATIVE: CASE EVENT DATE: 2006
